FAERS Safety Report 6503982-7 (Version None)
Quarter: 2009Q4

REPORT INFORMATION
  Report Type: 
  Country: None (occurrence: None)
  Receive Date: 20091216
  Receipt Date: 20091216
  Transmission Date: 20100525
  Serious: No
  Sender: FDA-Public Use
  Company Number: None

PATIENT
  Age: 61 Year
  Sex: Female
  Weight: 67.1324 kg

DRUGS (1)
  1. AMLODIPINE BESYLATE [Suspect]
     Indication: BLOOD PRESSURE MANAGEMENT
     Dosage: 5 MG ONCE A DAY BY MOUTH
     Route: 048
     Dates: start: 20091110, end: 20091125

REACTIONS (4)
  - DRUG HYPERSENSITIVITY [None]
  - ERYTHEMA [None]
  - JOINT SWELLING [None]
  - RASH [None]
